FAERS Safety Report 8111896 (Version 3)
Quarter: 2013Q4

REPORT INFORMATION
  Report Type: Spontaneous
  Country: US (occurrence: US)
  Receive Date: 20110829
  Receipt Date: 20131105
  Transmission Date: 20140711
  Serious: Yes (Hospitalization, Other)
  Sender: FDA-Public Use
  Company Number: US-ASTRAZENECA-2009UW15278

PATIENT
  Age: 86 Year
  Sex: Female

DRUGS (4)
  1. ARIMIDEX [Suspect]
     Indication: BREAST CANCER FEMALE
     Route: 048
     Dates: start: 2008
  2. TOPROL XL [Suspect]
     Route: 048
  3. TOPROL XL [Suspect]
     Dosage: INCREASED
     Route: 048
  4. TAMOXIFEN [Suspect]
     Indication: BREAST CANCER FEMALE
     Route: 048

REACTIONS (2)
  - Ventricular extrasystoles [Unknown]
  - Breast cancer female [Unknown]
